FAERS Safety Report 15110382 (Version 7)
Quarter: 2023Q1

REPORT INFORMATION
  Report Type: Spontaneous
  Country: ES (occurrence: ES)
  Receive Date: 20180705
  Receipt Date: 20230215
  Transmission Date: 20230417
  Serious: Yes (Death, Hospitalization, Other)
  Sender: FDA-Public Use
  Company Number: PHHY2018ES036053

PATIENT
  Age: 62 Year
  Sex: Male

DRUGS (24)
  1. CLONAZEPAM [Interacting]
     Active Substance: CLONAZEPAM
     Indication: Epilepsy
     Dosage: 8 MG, QD
     Route: 065
  2. CLONAZEPAM [Interacting]
     Active Substance: CLONAZEPAM
     Dosage: 2 MG, QID
     Route: 065
  3. CLONAZEPAM [Interacting]
     Active Substance: CLONAZEPAM
     Dosage: 0.5 MG, QID (1-1-1-1 CHRONIC)
     Route: 065
  4. METFORMIN [Interacting]
     Active Substance: METFORMIN HYDROCHLORIDE
     Indication: Type 2 diabetes mellitus
     Dosage: 3 G, QD
     Route: 048
  5. METFORMIN [Interacting]
     Active Substance: METFORMIN HYDROCHLORIDE
     Dosage: 3400 MG, QD
     Route: 048
  6. METFORMIN [Interacting]
     Active Substance: METFORMIN HYDROCHLORIDE
     Dosage: 850 MG, BID CHRONIC (0-1-1-0)
     Route: 048
  7. LORATADINE [Interacting]
     Active Substance: LORATADINE
     Indication: Rhinitis allergic
     Dosage: 10 MG, QD (1-0-0-0)
     Route: 065
  8. FLUTICASONE PROPIONATE\SALMETEROL XINAFOATE [Interacting]
     Active Substance: FLUTICASONE PROPIONATE\SALMETEROL XINAFOATE
     Indication: Asthma
     Dosage: 2 DF (2 PUFFS) FLUTICASONE- 250 UG AND SALMETEROL 25 UG (1-0-1-0 2 INHALACIONES)
     Route: 048
  9. FLUTICASONE PROPIONATE\SALMETEROL XINAFOATE [Interacting]
     Active Substance: FLUTICASONE PROPIONATE\SALMETEROL XINAFOATE
     Dosage: 1 DF, QD FLUTICASONE- 250 UG AND SALMETEROL 25 UG
     Route: 065
  10. FLUTICASONE PROPIONATE\SALMETEROL XINAFOATE [Interacting]
     Active Substance: FLUTICASONE PROPIONATE\SALMETEROL XINAFOATE
     Dosage: 4 DF QD FLUTICASONE- 250 UG AND SALMETEROL 25 UG
     Route: 055
  11. VALPROATE [Interacting]
     Active Substance: VALPROIC ACID
     Indication: Epilepsy
     Dosage: 4500 MG
     Route: 065
  12. VALPROATE [Interacting]
     Active Substance: VALPROIC ACID
     Indication: Mania
     Dosage: 500 MG, TID (1-1-1-0)
     Route: 065
  13. QUETIAPINE [Interacting]
     Active Substance: QUETIAPINE
     Indication: Major depression
     Dosage: 3600 MG, QD
     Route: 065
  14. QUETIAPINE [Interacting]
     Active Substance: QUETIAPINE
     Indication: Schizophrenia
     Dosage: 800 MG, (400 TO 800 MG/DAY)
     Route: 065
  15. QUETIAPINE [Interacting]
     Active Substance: QUETIAPINE
     Dosage: 1200 MG, QD
     Route: 065
  16. QUETIAPINE [Interacting]
     Active Substance: QUETIAPINE
     Dosage: 1200 MG, TID
     Route: 065
  17. QUETIAPINE [Interacting]
     Active Substance: QUETIAPINE
     Dosage: 400 MG, TID
     Route: 065
  18. LEVOTHYROXINE [Interacting]
     Active Substance: LEVOTHYROXINE
     Indication: Hypothyroidism
     Dosage: 450 UG, QD
     Route: 065
  19. LEVOTHYROXINE [Interacting]
     Active Substance: LEVOTHYROXINE
     Dosage: 150 UG, QD (3-0-0-0) (100-200 UG)
     Route: 065
  20. HALOPERIDOL [Interacting]
     Active Substance: HALOPERIDOL
     Indication: Neuroleptic malignant syndrome
     Dosage: 20 MG (10-20 MG)
     Route: 065
  21. HALOPERIDOL [Interacting]
     Active Substance: HALOPERIDOL
     Indication: Psychotic disorder
     Dosage: 45 UG, QD
     Route: 065
  22. HALOPERIDOL [Interacting]
     Active Substance: HALOPERIDOL
     Dosage: 5 MG, TID (1-1-1-0) CHRONIC
     Route: 065
  23. TIOTROPIUM BROMIDE [Interacting]
     Active Substance: TIOTROPIUM BROMIDE
     Indication: Chronic obstructive pulmonary disease
     Dosage: 5 UG, QD (2 PUFFS)
     Route: 065
  24. TIOTROPIUM BROMIDE [Interacting]
     Active Substance: TIOTROPIUM BROMIDE
     Dosage: 25 UG, QD
     Route: 065

REACTIONS (11)
  - Cardiac failure [Fatal]
  - Ventricular fibrillation [Fatal]
  - Prescribed overdose [Fatal]
  - Hyperprolactinaemia [Fatal]
  - Coma [Fatal]
  - Loss of consciousness [Fatal]
  - Drug interaction [Fatal]
  - Off label use [Fatal]
  - Type 2 diabetes mellitus [Unknown]
  - Hypothyroidism [Unknown]
  - Pruritus [Unknown]
